FAERS Safety Report 4612238-9 (Version None)
Quarter: 2005Q1

REPORT INFORMATION
  Report Type: 
  Country: None (occurrence: None)
  Receive Date: 20050316
  Receipt Date: 20050301
  Transmission Date: 20050727
  Serious: Yes (Death)
  Sender: FDA-Public Use
  Company Number: US_0503113770

PATIENT
  Age: 26 Year

DRUGS (4)
  1. ZYPREXA [Suspect]
     Route: 048
     Dates: end: 20030101
  2. METHADONE HCL [Concomitant]
  3. ALPRAZOLAM [Concomitant]
  4. OLANZAPINE [Concomitant]

REACTIONS (3)
  - DRUG ABUSER [None]
  - OVERDOSE [None]
  - RESPIRATORY ARREST [None]
